FAERS Safety Report 4973485-X (Version None)
Quarter: 2006Q2

REPORT INFORMATION
  Report Type: 
  Country: None (occurrence: None)
  Receive Date: 20060413
  Receipt Date: 20060413
  Transmission Date: 20061013
  Serious: Yes (Other)
  Sender: FDA-Public Use
  Company Number: None

PATIENT
  Age: 71 Year
  Sex: Male
  Weight: 83.9 kg

DRUGS (7)
  1. BENAZEPRIL HYDROCHLORIDE [Suspect]
  2. CILOSTAZOL [Concomitant]
  3. BENAZEPRIL HCL [Concomitant]
  4. INSULIN NOVOLIN 70/30 (NPH/REG) INJ NOVO [Concomitant]
  5. SIMVASTATIN [Concomitant]
  6. LISINOPRIL [Concomitant]
  7. HUMULIN N [Concomitant]

REACTIONS (1)
  - COUGH [None]
